FAERS Safety Report 12058925 (Version 1)
Quarter: 2016Q1

REPORT INFORMATION
  Report Type: Spontaneous
  Country: US (occurrence: US)
  Receive Date: 20160210
  Receipt Date: 20160210
  Transmission Date: 20160526
  Serious: No
  Sender: FDA-Public Use
  Company Number: US-ASTRAZENECA-2016SE10793

PATIENT
  Age: 57 Year
  Sex: Male

DRUGS (1)
  1. BRILINTA [Suspect]
     Active Substance: TICAGRELOR
     Indication: ANGINA UNSTABLE
     Route: 048
     Dates: start: 20160128, end: 20160129

REACTIONS (2)
  - Generalised oedema [Not Recovered/Not Resolved]
  - Face oedema [Unknown]

NARRATIVE: CASE EVENT DATE: 20160128
